FAERS Safety Report 15324868 (Version 14)
Quarter: 2020Q1

REPORT INFORMATION
  Report Type: Spontaneous
  Country: CA (occurrence: CA)
  Receive Date: 20180828
  Receipt Date: 20200316
  Transmission Date: 20200409
  Serious: Yes (Other)
  Sender: FDA-Public Use
  Company Number: CA-CELLTRION INC.-2017CA005101

PATIENT

DRUGS (22)
  1. INFLECTRA [Suspect]
     Active Substance: INFLIXIMAB-DYYB
     Dosage: 300 MG, AT 0, 2, 6, THEN EVERY 8 WEEKS
     Route: 042
     Dates: start: 20180222, end: 20180222
  2. INFLECTRA [Suspect]
     Active Substance: INFLIXIMAB-DYYB
     Dosage: 300 MG, AT 0, 2, 6, THEN EVERY 8 WEEKS
     Route: 042
     Dates: start: 20180417, end: 20180417
  3. INFLECTRA [Suspect]
     Active Substance: INFLIXIMAB-DYYB
     Dosage: 300 MG, AT 0, 2, 6, THEN EVERY 8 WEEKS
     Route: 042
     Dates: start: 20181128, end: 20181128
  4. INFLECTRA [Suspect]
     Active Substance: INFLIXIMAB-DYYB
     Dosage: 300 MG, AT 0, 2, 6, THEN EVERY 8 WEEKS
     Dates: start: 20191106
  5. INFLECTRA [Suspect]
     Active Substance: INFLIXIMAB-DYYB
     Indication: CROHN^S DISEASE
     Dosage: 300 MG, AT 0, 2, 6, THEN EVERY 8 WEEKS
     Route: 042
     Dates: start: 20170403, end: 20170403
  6. INFLECTRA [Suspect]
     Active Substance: INFLIXIMAB-DYYB
     Dosage: 300 MG, AT 0, 2, 6, THEN EVERY 8 WEEKS
     Route: 042
  7. INFLECTRA [Suspect]
     Active Substance: INFLIXIMAB-DYYB
     Dosage: 300 MG, AT 0, 2, 6, THEN EVERY 8 WEEKS
     Dates: start: 20190710, end: 20190710
  8. INFLECTRA [Suspect]
     Active Substance: INFLIXIMAB-DYYB
     Dosage: 300 MG, AT 0, 2, 6, THEN EVERY 8 WEEKS
     Dates: start: 20190911, end: 20190911
  9. INFLECTRA [Suspect]
     Active Substance: INFLIXIMAB-DYYB
     Dosage: 300 MG, AT 0, 2, 6, THEN EVERY 8 WEEKS
     Dates: start: 20200108
  10. APO-AZATHIOPRINE [Concomitant]
     Active Substance: AZATHIOPRINE
     Dosage: UNK, 50MG 2 TABLETS
     Route: 065
  11. IMURAN [Concomitant]
     Active Substance: AZATHIOPRINE
     Dosage: 100 MG, 2X/DAY
     Route: 048
  12. INFLECTRA [Suspect]
     Active Substance: INFLIXIMAB-DYYB
     Dosage: 300 MG, AT 0, 2, 6, THEN EVERY 8 WEEKS
     Route: 042
     Dates: start: 20180815, end: 20180815
  13. INFLECTRA [Suspect]
     Active Substance: INFLIXIMAB-DYYB
     Dosage: 300 MG, AT 0, 2, 6, THEN EVERY 8 WEEKS
     Route: 042
     Dates: start: 20181002, end: 20181002
  14. PREDNISONE. [Concomitant]
     Active Substance: PREDNISONE
     Dosage: 40 MG TO 0 MG EVERY 2 MONTHS
     Dates: start: 201501
  15. NEUPOGEN [Concomitant]
     Active Substance: FILGRASTIM
     Indication: STEM CELL DONOR
     Dosage: 300 MG / 0.5 ML Q (EVERY) 12 HOURS
     Route: 058
     Dates: start: 20190301, end: 20190304
  16. INFLECTRA [Suspect]
     Active Substance: INFLIXIMAB-DYYB
     Dosage: 300 MG, AT 0, 2, 6, THEN EVERY 8 WEEKS
     Route: 042
     Dates: start: 20171227, end: 20171227
  17. INFLECTRA [Suspect]
     Active Substance: INFLIXIMAB-DYYB
     Dosage: 300 MG, AT 0, 2, 6, THEN EVERY 8 WEEKS
     Route: 042
     Dates: start: 20180612, end: 20180612
  18. INFLECTRA [Suspect]
     Active Substance: INFLIXIMAB-DYYB
     Dosage: 300 MG, AT 0, 2, 6, THEN EVERY 8 WEEKS
     Route: 042
     Dates: start: 20190319, end: 20190319
  19. INFLECTRA [Suspect]
     Active Substance: INFLIXIMAB-DYYB
     Dosage: UNK
     Dates: start: 20170418, end: 20170418
  20. INFLECTRA [Suspect]
     Active Substance: INFLIXIMAB-DYYB
     Dosage: 300 MG, AT 0, 2, 6, THEN EVERY 8 WEEKS
     Route: 042
     Dates: start: 20190122, end: 20190122
  21. INFLECTRA [Suspect]
     Active Substance: INFLIXIMAB-DYYB
     Dosage: 300 MG, AT 0, 2, 6, THEN EVERY 8 WEEKS
     Route: 042
     Dates: start: 20190521, end: 20190521
  22. IMURAN [Concomitant]
     Active Substance: AZATHIOPRINE
     Indication: CROHN^S DISEASE
     Dosage: 100 MG, 1X/DAY
     Route: 048
     Dates: start: 201501

REACTIONS (21)
  - Rectal haemorrhage [Unknown]
  - Therapeutic product effect incomplete [Unknown]
  - Condition aggravated [Not Recovered/Not Resolved]
  - Nasal congestion [Not Recovered/Not Resolved]
  - Nausea [Unknown]
  - Hypertension [Unknown]
  - Blood pressure fluctuation [Not Recovered/Not Resolved]
  - Pyrexia [Unknown]
  - Chills [Unknown]
  - Constipation [Unknown]
  - Pruritus [Unknown]
  - Intentional product use issue [Unknown]
  - Arthralgia [Unknown]
  - Fatigue [Not Recovered/Not Resolved]
  - Abdominal pain upper [Recovered/Resolved]
  - Pain [Unknown]
  - Paraesthesia [Unknown]
  - Rash erythematous [Recovering/Resolving]
  - Off label use [Unknown]
  - Nasopharyngitis [Unknown]
  - Expired product administered [Unknown]

NARRATIVE: CASE EVENT DATE: 201704
